FAERS Safety Report 9697859 (Version 1)
Quarter: 2013Q4

REPORT INFORMATION
  Report Type: Spontaneous
  Country: DK (occurrence: JP)
  Receive Date: 20131120
  Receipt Date: 20131120
  Transmission Date: 20140711
  Serious: Yes (Hospitalization, Disabling)
  Sender: FDA-Public Use
  Company Number: DK-SA-2013SA119665

PATIENT
  Age: 68 Year
  Sex: Male

DRUGS (5)
  1. DDAVP [Suspect]
     Indication: DIABETES INSIPIDUS
     Route: 045
     Dates: start: 20131101
  2. MINIRIN [Suspect]
     Indication: DIABETES INSIPIDUS
     Route: 048
     Dates: start: 20131026, end: 20131031
  3. ALL OTHER THERAPEUTIC PRODUCTS [Concomitant]
     Route: 048
     Dates: end: 20131107
  4. MYSLEE [Concomitant]
     Route: 048
     Dates: end: 20131107
  5. URSO [Concomitant]
     Route: 048
     Dates: start: 20131107

REACTIONS (2)
  - Hepatic function abnormal [Recovered/Resolved]
  - Granulocyte count decreased [Recovered/Resolved]
